FAERS Safety Report 5466985-X (Version None)
Quarter: 2007Q3

REPORT INFORMATION
  Report Type: 
  Country: None (occurrence: None)
  Receive Date: 20070921
  Receipt Date: 20070921
  Transmission Date: 20080115
  Serious: Yes (Hospitalization)
  Sender: FDA-Public Use
  Company Number: None

PATIENT
  Age: 88 Year
  Sex: Male

DRUGS (2)
  1. PROMETHAZINE [Suspect]
     Dosage: 25MG ONCE IV
     Route: 042
     Dates: start: 20070712, end: 20070712
  2. HYDRALAZINE HCL [Suspect]
     Dosage: 20MG ONCE IV
     Route: 042
     Dates: start: 20070712, end: 20070712

REACTIONS (5)
  - BURNING SENSATION [None]
  - DYSTONIA [None]
  - MENTAL STATUS CHANGES [None]
  - MUSCLE RIGIDITY [None]
  - MUSCLE SPASMS [None]
